FAERS Safety Report 11414207 (Version 1)
Quarter: 2015Q3

REPORT INFORMATION
  Report Type: Spontaneous
  Country: TR (occurrence: TR)
  Receive Date: 20150824
  Receipt Date: 20150824
  Transmission Date: 20151125
  Serious: Yes (Other)
  Sender: FDA-Public Use
  Company Number: ALCN2015TR005093

PATIENT
  Sex: Male

DRUGS (6)
  1. TERRAMYCIN [Concomitant]
     Active Substance: OXYTETRACYCLINE\OXYTETRACYCLINE HYDROCHLORIDE
     Indication: LACRIMAL DISORDER
  2. VIGAMOX [Suspect]
     Active Substance: MOXIFLOXACIN HYDROCHLORIDE
     Indication: ENDOPHTHALMITIS
     Dosage: 1 GTT, QD
     Route: 047
  3. TERRAMYCIN [Concomitant]
     Active Substance: OXYTETRACYCLINE\OXYTETRACYCLINE HYDROCHLORIDE
     Indication: ENDOPHTHALMITIS
     Dosage: 1 DF, Q3H
     Route: 047
  4. VIGAMOX [Suspect]
     Active Substance: MOXIFLOXACIN HYDROCHLORIDE
     Indication: LACRIMAL DISORDER
  5. EYESTIL [Concomitant]
     Indication: ENDOPHTHALMITIS
     Dosage: 1 GTT, Q12H
     Route: 047
  6. EYESTIL [Concomitant]
     Indication: LACRIMAL DISORDER

REACTIONS (1)
  - Eye haemorrhage [Unknown]
